FAERS Safety Report 5112597-7 (Version None)
Quarter: 2006Q3

REPORT INFORMATION
  Report Type: 
  Country: None (occurrence: None)
  Receive Date: 20060922
  Receipt Date: 20060517
  Transmission Date: 20061208
  Serious: Yes (Other)
  Sender: FDA-Public Use
  Company Number: PHMT2006CA01235

PATIENT
  Sex: Female

DRUGS (9)
  1. CIMETIDINE [Suspect]
     Dosage: 300 MG, BID
     Route: 048
     Dates: start: 20050601
  2. FOSAMAX [Suspect]
     Dosage: 70 MG, QW
     Route: 048
     Dates: start: 20050601
  3. CALCIUM GLUCONATE [Suspect]
     Dates: start: 20050601
  4. AMITRIPTYLINE HCL [Suspect]
     Dosage: 25 MG, QHS
     Dates: start: 20060301
  5. SOTALOL HYDROCHLORIDE [Suspect]
     Dosage: 80 MG, BID
     Route: 048
     Dates: start: 20060301
  6. FEMARA [Suspect]
     Indication: BREAST CANCER
     Dosage: 2.5 MG, QD
     Route: 048
     Dates: start: 20050601
  7. CALCIUM WITH VITAMIN D [Concomitant]
     Dosage: CALCIUM 500 MG WITH VITAMIN D, QD
     Route: 048
  8. ATENOLOL [Concomitant]
     Dosage: 50 MG, QD
  9. MULTIVITAMIN [Concomitant]
     Dosage: QD
     Route: 048

REACTIONS (5)
  - ARRHYTHMIA [None]
  - ATRIAL FIBRILLATION [None]
  - DRUG INTERACTION [None]
  - ELECTROCARDIOGRAM QT PROLONGED [None]
  - HEART RATE IRREGULAR [None]
